FAERS Safety Report 5647077-3 (Version None)
Quarter: 2008Q1

REPORT INFORMATION
  Report Type: 
  Country: None (occurrence: None)
  Receive Date: 20080303
  Receipt Date: 20080221
  Transmission Date: 20080703
  Serious: Yes (Other)
  Sender: FDA-Public Use
  Company Number: US-JNJFOC-20080206121

PATIENT
  Sex: Male
  Weight: 58.97 kg

DRUGS (4)
  1. DURAGESIC-100 [Suspect]
     Route: 062
  2. DURAGESIC-100 [Suspect]
     Indication: BACK INJURY
     Route: 062
  3. PROTONIX [Concomitant]
     Indication: GASTRIC DISORDER
     Route: 048
  4. NEURONTIN [Concomitant]
     Indication: BACK INJURY
     Dosage: 2-3 AS NEEDED
     Route: 048

REACTIONS (3)
  - BODY HEIGHT DECREASED [None]
  - DRUG EFFECT DECREASED [None]
  - INAPPROPRIATE SCHEDULE OF DRUG ADMINISTRATION [None]
